FAERS Safety Report 11444992 (Version 1)
Quarter: 2015Q3

REPORT INFORMATION
  Report Type: Spontaneous
  Country: BR (occurrence: BR)
  Receive Date: 20150902
  Receipt Date: 20150902
  Transmission Date: 20151125
  Serious: Yes (Life-Threatening, Hospitalization)
  Sender: FDA-Public Use
  Company Number: BR-ACCORD-033442

PATIENT
  Age: 69 Year
  Sex: Female
  Weight: 68.9 kg

DRUGS (6)
  1. NAUSEDRON CRISTALIA [Concomitant]
     Indication: PROPHYLAXIS
     Dosage: 1 AMPOULE.?NAUSEDRON CRISTALIA 8MG/4ML
     Route: 042
     Dates: start: 20150820, end: 20150820
  2. DIFENIDRIN CRISTALIA [Concomitant]
     Indication: PROPHYLAXIS
     Dosage: 1 AMPOULE?SALINE 100ML + DIFENIDRIN CRISTALIA 50MG/ML
     Route: 042
     Dates: start: 20150820, end: 20150820
  3. DEXAMETHASONE TEUTO [Concomitant]
     Active Substance: DEXAMETHASONE
     Indication: PROPHYLAXIS
     Dosage: SALINE 100ML + DEXAMETHASONE TEUTO
     Route: 042
     Dates: start: 20150820, end: 20150820
  4. PACLITAXEL/PACLITAXEL LIPOSOME [Suspect]
     Active Substance: PACLITAXEL
     Indication: BREAST CANCER FEMALE
     Dosage: STRENGTH: 300 MG DAILY??175 MG/M2 EVERY 21 DAYS.
     Route: 042
     Dates: start: 20150820, end: 20150820
  5. RANITIDINE HYPOFARMA [Concomitant]
     Indication: PROPHYLAXIS
     Dosage: 1 AMPOULE.?RANITIDINE HYPOFARMA 50MG/2ML
     Route: 042
     Dates: start: 20150820, end: 20150820
  6. SALINE BAXTER [Concomitant]
     Indication: PROPHYLAXIS
     Dosage: 1 BAG. ?0.9% 500 ML SALINE BAXTER
     Route: 042
     Dates: start: 20150820, end: 20150820

REACTIONS (10)
  - Erythema [Recovered/Resolved]
  - Cyanosis [Recovered/Resolved]
  - Respiratory arrest [Recovered/Resolved]
  - Hypotension [Recovered/Resolved]
  - Infusion related reaction [None]
  - Pallor [Recovered/Resolved]
  - Electrocardiogram abnormal [None]
  - Ischaemia [None]
  - Muscle spasms [Recovered/Resolved]
  - Acidosis [None]

NARRATIVE: CASE EVENT DATE: 20150820
